FAERS Safety Report 5188371-2 (Version None)
Quarter: 2006Q4

REPORT INFORMATION
  Report Type: 
  Country: None (occurrence: None)
  Receive Date: 20061214
  Receipt Date: 20061204
  Transmission Date: 20070319
  Serious: Yes (Other)
  Sender: FDA-Public Use
  Company Number: 2006130834

PATIENT
  Age: 58 Year
  Sex: Male

DRUGS (2)
  1. CHANTIX [Suspect]
     Dates: start: 20061024
  2. MEDROL [Concomitant]

REACTIONS (4)
  - DIARRHOEA [None]
  - FOOD POISONING [None]
  - TREMOR [None]
  - VOMITING [None]
